FAERS Safety Report 8126982-2 (Version None)
Quarter: 2011Q4

REPORT INFORMATION
  Report Type: 
  Country: None (occurrence: None)
  Receive Date: 20111227
  Receipt Date: 20111110
  Transmission Date: 20120403
  Serious: No
  Sender: FDA-Public Use
  Company Number: PHEH2011US009121

PATIENT
  Age: 48 Year
  Sex: Male

DRUGS (1)
  1. GILENYA [Suspect]
     Dates: end: 20110801

REACTIONS (4)
  - DYSPNOEA [None]
  - BRADYCARDIA [None]
  - PULMONARY FUNCTION TEST DECREASED [None]
  - LETHARGY [None]
